FAERS Safety Report 8355495 (Version 2)
Quarter: 2012Q4

REPORT INFORMATION
  Report Type: 
  Country: US (occurrence: US)
  Receive Date: 20120126
  Receipt Date: 20120914
  Transmission Date: 20130627
  Serious: Yes (Hospitalization, Other)
  Sender: FDA-Public Use
  Company Number: US-PFIZER INC-2012016645

PATIENT
  Age: 75 Year
  Sex: Male

DRUGS (2)
  1. REVATIO [Suspect]
     Indication: PULMONARY HYPERTENSION
     Dosage: 20 mg, 3x/day
     Dates: start: 2008
  2. REVATIO [Suspect]
     Dosage: UNK

REACTIONS (3)
  - Pericardial effusion [Unknown]
  - Cardiac failure congestive [Unknown]
  - Dyspnoea [Unknown]
